FAERS Safety Report 14640988 (Version 23)
Quarter: 2022Q2

REPORT INFORMATION
  Report Type: Spontaneous
  Country: US (occurrence: US)
  Receive Date: 20180315
  Receipt Date: 20220523
  Transmission Date: 20220721
  Serious: No
  Sender: FDA-Public Use
  Company Number: US-PFIZER INC-2018104401

PATIENT
  Age: 80 Year
  Sex: Male
  Weight: 68 kg

DRUGS (10)
  1. LYRICA [Suspect]
     Active Substance: PREGABALIN
     Indication: Post herpetic neuralgia
     Dosage: 50 MG, THREE TIMES A DAY
     Route: 048
     Dates: start: 201802
  2. LYRICA [Suspect]
     Active Substance: PREGABALIN
     Indication: Neuralgia
     Dosage: 100 MG
     Dates: start: 201802
  3. LYRICA [Suspect]
     Active Substance: PREGABALIN
     Dosage: 150 MG, THREE TIMES A DAY
     Dates: start: 201802, end: 2018
  4. LYRICA [Suspect]
     Active Substance: PREGABALIN
     Dosage: 150 MG, EVERY 6 HOURS
     Route: 048
     Dates: start: 20180401, end: 2018
  5. LYRICA [Suspect]
     Active Substance: PREGABALIN
     Dosage: 150 MG, EVERY 6 HOURS
     Route: 048
     Dates: start: 2018, end: 2018
  6. LYRICA [Suspect]
     Active Substance: PREGABALIN
     Dosage: 150 MG, TWICE A DAY
     Dates: start: 2018, end: 2018
  7. LYRICA [Suspect]
     Active Substance: PREGABALIN
     Dosage: 150 MG, FOUR TIMES A DAY
     Route: 048
     Dates: start: 2018
  8. LYRICA [Suspect]
     Active Substance: PREGABALIN
     Dosage: 150 MG, EVERY 6 HOURS
     Route: 048
  9. ACETAMINOPHEN\HYDROCODONE [Concomitant]
     Active Substance: ACETAMINOPHEN\HYDROCODONE
     Indication: Post herpetic neuralgia
     Dosage: 1 DF, 3X/DAY, 7.5-325 1 TABLET BY MOUTH EVERY 8 HOURS
     Route: 048
     Dates: start: 201802
  10. ACETAMINOPHEN\HYDROCODONE [Concomitant]
     Active Substance: ACETAMINOPHEN\HYDROCODONE
     Dosage: UNK
     Dates: start: 20180315

REACTIONS (2)
  - Drug ineffective [Unknown]
  - Tremor [Unknown]

NARRATIVE: CASE EVENT DATE: 20180201
